FAERS Safety Report 6084301-X (Version None)
Quarter: 2009Q1

REPORT INFORMATION
  Report Type: 
  Country: None (occurrence: None)
  Receive Date: 20090217
  Receipt Date: 20081209
  Transmission Date: 20090719
  Serious: Yes (Other)
  Sender: FDA-Public Use
  Company Number: JP-2008-1060

PATIENT
  Age: 61 Year
  Sex: Male

DRUGS (14)
  1. NAVELBINE [Suspect]
     Indication: LUNG ADENOCARCINOMA
     Dosage: 35 MG UNK IV
     Route: 042
     Dates: start: 20081009, end: 20081009
  2. CISPLATIN [Suspect]
     Indication: LUNG ADENOCARCINOMA
     Dosage: 130 MG UNK IV
     Route: 042
     Dates: start: 20081009, end: 20081009
  3. NORVASC [Suspect]
     Indication: HYPERTENSION
     Dosage: 5 MG QD PO
     Route: 048
  4. LASIX [Suspect]
     Indication: POLYURIA
     Dosage: 10 MG QD PO
     Route: 048
     Dates: start: 20081009, end: 20081012
  5. VOLTAREN [Suspect]
     Indication: CANCER PAIN
     Dosage: 37.5 MG BID
     Dates: start: 20080922
  6. NASEA [Concomitant]
  7. DEXART [Concomitant]
  8. GASTER [Concomitant]
  9. MANNITOL [Concomitant]
  10. SPIRIVA [Concomitant]
  11. HYPEN [Concomitant]
  12. LOXONIN [Concomitant]
  13. CYTOTEC [Concomitant]
  14. ZANTAC [Concomitant]

REACTIONS (6)
  - HYPOTENSION [None]
  - MALAISE [None]
  - PALLOR [None]
  - PO2 DECREASED [None]
  - RESPIRATORY DISORDER [None]
  - SYNCOPE [None]
